FAERS Safety Report 11061938 (Version 1)
Quarter: 2015Q2

REPORT INFORMATION
  Report Type: Other
  Country: US (occurrence: US)
  Receive Date: 20150424
  Receipt Date: 20150424
  Transmission Date: 20150821
  Serious: Yes (Other)
  Sender: FDA-Public Use
  Company Number: US-ENDO PHARMACEUTICALS INC-2015-000497

PATIENT
  Age: 46 Year
  Sex: Male

DRUGS (1)
  1. OPANA ER [Suspect]
     Active Substance: OXYMORPHONE HYDROCHLORIDE
     Indication: DRUG ABUSE
     Route: 042

REACTIONS (4)
  - Blindness [Not Recovered/Not Resolved]
  - Drug abuse [Recovered/Resolved]
  - Retinal ischaemia [Not Recovered/Not Resolved]
  - Intentional product use issue [Recovered/Resolved]
